FAERS Safety Report 8842012 (Version 1)
Quarter: 2012Q4

REPORT INFORMATION
  Report Type: Spontaneous
  Country: US (occurrence: None)
  Receive Date: 20121015
  Receipt Date: 20121015
  Transmission Date: 20130627
  Serious: No
  Sender: FDA-Public Use
  Company Number: None

PATIENT
  Age: 63 Year
  Sex: Female
  Weight: 56.7 kg

DRUGS (1)
  1. XIAFLEX [Suspect]
     Indication: DUPUYTREN^S CONTRACTURE
     Dosage: 1 INJECTION
     Dates: start: 20120410

REACTIONS (2)
  - Oedema peripheral [None]
  - Complex regional pain syndrome [None]
